FAERS Safety Report 6127881-8 (Version None)
Quarter: 2009Q1

REPORT INFORMATION
  Report Type: 
  Country: None (occurrence: None)
  Receive Date: 20090319
  Receipt Date: 20090309
  Transmission Date: 20090719
  Serious: Yes (Hospitalization)
  Sender: FDA-Public Use
  Company Number: GXKR2009GB03069

PATIENT
  Age: 79 Year
  Sex: Female
  Weight: 82 kg

DRUGS (3)
  1. DICLOFENAC SODIUM [Suspect]
     Indication: ANALGESIA
     Dosage: 50 MG, TID, ORAL
     Route: 048
     Dates: start: 20090225, end: 20090227
  2. RIVAROXABAN [Suspect]
     Indication: EMBOLISM
     Dosage: 10 MG, QD, ORAL
     Route: 048
     Dates: start: 20090224, end: 20090227
  3. BENDROFLUMETHIAZIDE (BENDROFLUMETHIAZIDE) [Concomitant]

REACTIONS (1)
  - WOUND HAEMORRHAGE [None]
